FAERS Safety Report 12040376 (Version 2)
Quarter: 2016Q1

REPORT INFORMATION
  Report Type: Spontaneous
  Country: US (occurrence: US)
  Receive Date: 20160208
  Receipt Date: 20160318
  Transmission Date: 20160526
  Serious: No
  Sender: FDA-Public Use
  Company Number: US-GLAXOSMITHKLINE-US2016012069

PATIENT
  Age: 55 Year
  Sex: Male

DRUGS (1)
  1. VERAMYST [Suspect]
     Active Substance: FLUTICASONE FUROATE
     Indication: SINUSITIS
     Dosage: UNK UNK, QD
     Route: 045
     Dates: start: 2011

REACTIONS (3)
  - Burning sensation [Recovered/Resolved]
  - Pain [Recovered/Resolved]
  - Product quality issue [Unknown]

NARRATIVE: CASE EVENT DATE: 20160108
